FAERS Safety Report 14055253 (Version 1)
Quarter: 2017Q4

REPORT INFORMATION
  Report Type: Spontaneous
  Country: US (occurrence: US)
  Receive Date: 20171006
  Receipt Date: 20171006
  Transmission Date: 20180321
  Serious: No
  Sender: FDA-Public Use
  Company Number: US-JNJFOC-20170813040

PATIENT
  Age: 7 Decade
  Sex: Female
  Weight: 43.55 kg

DRUGS (2)
  1. WOMENS ROGAINE UNSCENTED [Suspect]
     Active Substance: MINOXIDIL
     Indication: ALOPECIA
     Dosage: HALF A CAP
     Route: 061
     Dates: start: 201610
  2. WOMENS ROGAINE UNSCENTED [Suspect]
     Active Substance: MINOXIDIL
     Indication: ALOPECIA
     Dosage: HALF A CAP
     Route: 061

REACTIONS (5)
  - Product storage error [Unknown]
  - Hair growth abnormal [Not Recovered/Not Resolved]
  - Product formulation issue [Unknown]
  - Therapeutic response unexpected [Unknown]
  - Drug ineffective [Unknown]
